FAERS Safety Report 7919799-2 (Version None)
Quarter: 2011Q4

REPORT INFORMATION
  Report Type: 
  Country: None (occurrence: None)
  Receive Date: 20111117
  Receipt Date: 20111107
  Transmission Date: 20120403
  Serious: Yes (Hospitalization)
  Sender: FDA-Public Use
  Company Number: CA-JNJFOC-20111104467

PATIENT
  Sex: Male
  Weight: 84.3 kg

DRUGS (5)
  1. IMURAN [Concomitant]
     Route: 048
  2. VITAMIN B-12 [Concomitant]
     Dosage: AND ^1000 MG  1/12^
  3. CELEXA [Concomitant]
  4. SCOPOLAMINE [Concomitant]
     Dosage: PRN
  5. REMICADE [Suspect]
     Indication: CROHN'S DISEASE
     Route: 042
     Dates: start: 20090623

REACTIONS (1)
  - PANCREATITIS [None]
